FAERS Safety Report 23243026 (Version 3)
Quarter: 2023Q4

REPORT INFORMATION
  Report Type: Report from Study
  Country: US (occurrence: US)
  Receive Date: 20231130
  Receipt Date: 20231229
  Transmission Date: 20240109
  Serious: No
  Sender: FDA-Public Use
  Company Number: US-ABBVIE-5515865

PATIENT
  Sex: Female
  Weight: 73 kg

DRUGS (4)
  1. IMBRUVICA [Suspect]
     Active Substance: IBRUTINIB
     Indication: Non-Hodgkin^s lymphoma
     Dosage: 140 MILLIGRAM
     Route: 048
     Dates: start: 20231106, end: 20231127
  2. IMBRUVICA [Suspect]
     Active Substance: IBRUTINIB
     Indication: Non-Hodgkin^s lymphoma
     Dosage: 140 MILLIGRAM?LAST ADMIN DATE NOV 2023
     Route: 048
     Dates: start: 20231102
  3. METHOTREXATE [Concomitant]
     Active Substance: METHOTREXATE
     Indication: Brain neoplasm
  4. RITUXIMAB [Concomitant]
     Active Substance: RITUXIMAB
     Indication: Brain neoplasm

REACTIONS (7)
  - Stress [Unknown]
  - Skin ulcer [Recovering/Resolving]
  - Contusion [Not Recovered/Not Resolved]
  - Hand-foot-and-mouth disease [Unknown]
  - Skin disorder [Unknown]
  - Stomatitis [Recovering/Resolving]
  - Laboratory test abnormal [Unknown]

NARRATIVE: CASE EVENT DATE: 20230101
